FAERS Safety Report 8067149-6 (Version None)
Quarter: 2012Q1

REPORT INFORMATION
  Report Type: 
  Country: None (occurrence: None)
  Receive Date: 20120124
  Receipt Date: 20120116
  Transmission Date: 20120608
  Serious: Yes (Other)
  Sender: FDA-Public Use
  Company Number: US-ABBOTT-12P-163-0894502-00

PATIENT
  Sex: Female
  Weight: 81.72 kg

DRUGS (1)
  1. HUMIRA [Suspect]
     Indication: INFLAMMATORY PSEUDOTUMOUR
     Route: 058
     Dates: start: 20100101, end: 20110701

REACTIONS (6)
  - SPINAL COLUMN STENOSIS [None]
  - PAIN [None]
  - OFF LABEL USE [None]
  - PAIN IN EXTREMITY [None]
  - NERVE COMPRESSION [None]
  - DRUG INEFFECTIVE [None]
